FAERS Safety Report 7626343-6 (Version None)
Quarter: 2011Q3

REPORT INFORMATION
  Report Type: 
  Country: None (occurrence: None)
  Receive Date: 20110721
  Receipt Date: 20110711
  Transmission Date: 20111222
  Serious: Yes (Life-Threatening, Hospitalization)
  Sender: FDA-Public Use
  Company Number: JP-PFIZER INC-2011164634

PATIENT
  Age: 60 Year
  Sex: Female

DRUGS (4)
  1. ACETYLSALICYLIC ACID [Concomitant]
     Dosage: 100 MG, 1X/DAY
     Dates: end: 20110710
  2. AMLODIPINE [Suspect]
     Indication: HYPERTENSION
  3. AMLODIPINE [Suspect]
     Indication: ANGINA PECTORIS
     Dosage: 5 MG, 1X/DAY
     Route: 048
     Dates: start: 19971107, end: 20110710
  4. TRICOR [Concomitant]
     Indication: HYPERLIPIDAEMIA
     Dosage: 100 MG, 1X/DAY
     Route: 048
     Dates: start: 19971107, end: 20110710

REACTIONS (2)
  - ANAPHYLACTIC SHOCK [None]
  - ERYTHEMA MULTIFORME [None]
